FAERS Safety Report 5607346-X (Version None)
Quarter: 2008Q1

REPORT INFORMATION
  Report Type: 
  Country: None (occurrence: None)
  Receive Date: 20080130
  Receipt Date: 20080129
  Transmission Date: 20080703
  Serious: Yes (Death)
  Sender: FDA-Public Use
  Company Number: FR-JNJFOC-20071002110

PATIENT
  Sex: Male
  Weight: 53 kg

DRUGS (8)
  1. RISPERDAL [Suspect]
     Dosage: 2 MG IN THE MORNING AND 4 MG IN THE EVENING
     Route: 048
  2. RISPERDAL [Suspect]
     Dosage: 4 MG IN THE MORNING AND 4 MG IN THE EVENING
     Route: 048
  3. RISPERDAL [Suspect]
     Dosage: 4 MG IN THE EVENING
     Route: 048
  4. RISPERDAL [Suspect]
     Indication: AUTISM SPECTRUM DISORDER
     Dosage: 0.5 MG IN THE MORNING AND 1 MG AT 7.00PM
     Route: 048
  5. URBANYL [Suspect]
     Indication: DRUG USE FOR UNKNOWN INDICATION
     Route: 048
  6. SEDATIF PC [Suspect]
     Indication: ANXIETY
     Route: 048
  7. CLAMOXYL [Concomitant]
     Indication: BRONCHITIS
     Route: 048
  8. ACETAMINOPHEN [Concomitant]
     Indication: PYREXIA
     Route: 048

REACTIONS (15)
  - ABNORMAL BEHAVIOUR [None]
  - ALTERED STATE OF CONSCIOUSNESS [None]
  - BRONCHITIS [None]
  - CHILLS [None]
  - DEATH [None]
  - DRUG INEFFECTIVE [None]
  - FATIGUE [None]
  - FEELING COLD [None]
  - HUNGER [None]
  - OCULOGYRIC CRISIS [None]
  - POLYDIPSIA [None]
  - PULMONARY OEDEMA [None]
  - PYREXIA [None]
  - SOCIAL AVOIDANT BEHAVIOUR [None]
  - TREMOR [None]
